FAERS Safety Report 4333889-5 (Version None)
Quarter: 2004Q2

REPORT INFORMATION
  Report Type: 
  Country: None (occurrence: None)
  Receive Date: 20040402
  Receipt Date: 20040319
  Transmission Date: 20050107
  Serious: Yes (Hospitalization, Other)
  Sender: FDA-Public Use
  Company Number: M04-INT-051

PATIENT
  Age: 45 Year
  Sex: Male
  Weight: 80 kg

DRUGS (8)
  1. INTEGRILIN [Suspect]
     Dates: end: 20031016
  2. BIVALIRUDIN [Suspect]
     Indication: ANTICOAGULANT THERAPY
     Dosage: TOTAL DOSE 200 MG: INTRAVENOUS (NOT OTHERWISE SPECIFIED)
     Route: 042
     Dates: start: 20031017, end: 20031017
  3. CLOPIDOGREL [Suspect]
  4. ACCUPRIL [Concomitant]
  5. ASPIRIN [Concomitant]
  6. COREG [Concomitant]
  7. GLYCERYL TRINITRATE [Concomitant]
  8. LIPITOR [Concomitant]

REACTIONS (12)
  - ACUTE RESPIRATORY DISTRESS SYNDROME [None]
  - ANXIETY [None]
  - ATELECTASIS [None]
  - CONFUSIONAL STATE [None]
  - HYPOXIA [None]
  - LUNG INFILTRATION [None]
  - OXYGEN SATURATION DECREASED [None]
  - PLEURAL EFFUSION [None]
  - PULMONARY CONGESTION [None]
  - PULMONARY OEDEMA [None]
  - PYREXIA [None]
  - RESPIRATORY FAILURE [None]
